FAERS Safety Report 9057637 (Version 1)
Quarter: 2013Q1

REPORT INFORMATION
  Report Type: Spontaneous
  Country: US (occurrence: None)
  Receive Date: 20130204
  Receipt Date: 20130204
  Transmission Date: 20140127
  Serious: Yes (Hospitalization)
  Sender: FDA-Public Use
  Company Number: None

PATIENT
  Age: 92 Year
  Sex: Female
  Weight: 70.3 kg

DRUGS (12)
  1. PLAVIX [Suspect]
     Indication: CEREBROVASCULAR ACCIDENT
     Route: 048
  2. MELOXICAM [Suspect]
     Route: 048
  3. ASA [Suspect]
  4. ISOSORBIDE [Concomitant]
  5. METOPROLOL [Concomitant]
  6. TESTOSTERONE [Concomitant]
  7. CYANOCOBALAMIN [Concomitant]
  8. NTG [Concomitant]
  9. CA+D [Concomitant]
  10. POTASSIUM CITRATE [Concomitant]
  11. MVI [Concomitant]
  12. OMEPRAZOLE [Concomitant]

REACTIONS (2)
  - Diverticulitis intestinal haemorrhagic [None]
  - Diverticulum intestinal [None]
